FAERS Safety Report 9806996 (Version 2)
Quarter: 2014Q1

REPORT INFORMATION
  Report Type: Report from Study
  Country: US (occurrence: US)
  Receive Date: 20140109
  Receipt Date: 20140130
  Transmission Date: 20141002
  Serious: Yes (Other)
  Sender: FDA-Public Use
  Company Number: US-ROCHE-1329209

PATIENT
  Sex: Female

DRUGS (12)
  1. AVASTIN [Suspect]
     Indication: DIABETIC RETINOPATHY
     Dosage: ^INJECTION OU^
     Route: 065
     Dates: start: 20131125
  2. AVASTIN [Suspect]
     Indication: DIABETIC RETINAL OEDEMA
  3. AVASTIN [Suspect]
     Indication: MACULAR DEGENERATION
  4. ASPIRIN [Concomitant]
     Route: 065
  5. CALCIUM ACETATE [Concomitant]
     Route: 065
  6. CRESTOR [Concomitant]
     Route: 065
  7. GABAPENTIN [Concomitant]
     Route: 065
  8. LANTUS [Concomitant]
     Dosage: 100UNIT/ML
     Route: 065
  9. LISINOPRIL [Concomitant]
     Route: 065
  10. NOVOLOG [Concomitant]
  11. PLAVIX [Concomitant]
     Route: 065
  12. SYNTHROID [Concomitant]
     Route: 065

REACTIONS (6)
  - Macular oedema [Unknown]
  - Visual impairment [Unknown]
  - Vitreous floaters [Unknown]
  - Visual acuity reduced [Unknown]
  - Glycosylated haemoglobin increased [Unknown]
  - Retinal exudates [Unknown]
